FAERS Safety Report 5327910-5 (Version None)
Quarter: 2007Q2

REPORT INFORMATION
  Report Type: 
  Country: None (occurrence: None)
  Receive Date: 20070517
  Receipt Date: 20070511
  Transmission Date: 20071010
  Serious: Yes (Death, Hospitalization)
  Sender: FDA-Public Use
  Company Number: SE-PFIZER INC-2007037693

PATIENT
  Sex: Male

DRUGS (11)
  1. REVATIO [Suspect]
     Indication: PULMONARY HYPERTENSION
     Route: 048
     Dates: start: 20061128, end: 20070211
  2. OXIS TURBUHALER ^ASTRA ZENECA^ [Concomitant]
  3. FOSAMAX [Concomitant]
  4. SPIRIVA [Concomitant]
  5. OMEPRAZOLE [Concomitant]
  6. WARAN [Concomitant]
  7. IMPUGAN [Concomitant]
  8. EMGESAN [Concomitant]
  9. ZOLPIDEM TARTRATE [Concomitant]
  10. PREDNISOLONE [Concomitant]
  11. CALCICHEW-D3 [Concomitant]

REACTIONS (1)
  - ANEURYSM [None]
